FAERS Safety Report 13162820 (Version 1)
Quarter: 2017Q1

REPORT INFORMATION
  Report Type: Spontaneous
  Country: US (occurrence: US)
  Receive Date: 20170125
  Receipt Date: 20170125
  Transmission Date: 20170428
  Serious: Yes (Other)
  Sender: FDA-Public Use
  Company Number: None

PATIENT
  Age: 57 Year
  Sex: Female
  Weight: 54 kg

DRUGS (11)
  1. AMITRIPTYLINE [Concomitant]
     Active Substance: AMITRIPTYLINE
  2. DIAZEPAM. [Concomitant]
     Active Substance: DIAZEPAM
  3. SAVELLA [Concomitant]
     Active Substance: MILNACIPRAN HYDROCHLORIDE
  4. ZANAFLEX [Concomitant]
     Active Substance: TIZANIDINE HYDROCHLORIDE
  5. SYNTHROID [Concomitant]
     Active Substance: LEVOTHYROXINE SODIUM
  6. COQ10 [Concomitant]
     Active Substance: UBIDECARENONE
  7. FIORINAL [Concomitant]
     Active Substance: ASPIRIN\BUTALBITAL\CAFFEINE
  8. CARAFATE [Concomitant]
     Active Substance: SUCRALFATE
  9. FENTANYL. [Suspect]
     Active Substance: FENTANYL
     Indication: NEURALGIA
     Dosage: OTHER STRENGTH:75MCG/HR;QUANTITY:15 PATCH(ES);OTHER FREQUENCY:EVERY 48 HRS;?
     Route: 062
  10. DICYCLOMINE [Concomitant]
     Active Substance: DICYCLOMINE HYDROCHLORIDE
  11. PROBIOTIC [Concomitant]
     Active Substance: PROBIOTICS NOS

REACTIONS (6)
  - Overdose [None]
  - Drug effect increased [None]
  - Fatigue [None]
  - Flushing [None]
  - Hyperhidrosis [None]
  - Euphoric mood [None]

NARRATIVE: CASE EVENT DATE: 20170123
